FAERS Safety Report 5526144-9 (Version None)
Quarter: 2007Q4

REPORT INFORMATION
  Report Type: 
  Country: None (occurrence: None)
  Receive Date: 20071120
  Receipt Date: 20070818
  Transmission Date: 20080405
  Serious: Yes (Death, Hospitalization)
  Sender: FDA-Public Use
  Company Number: 2007-03828

PATIENT
  Age: 70 Year
  Sex: Male
  Weight: 69 kg

DRUGS (1)
  1. VELCADE [Suspect]
     Indication: MULTIPLE MYELOMA
     Dosage: 4.00 MG
     Dates: start: 20061027, end: 20061216

REACTIONS (6)
  - ANAEMIA [None]
  - BONE EROSION [None]
  - COMPRESSION FRACTURE [None]
  - HYPERTENSION [None]
  - MULTIPLE MYELOMA [None]
  - PYREXIA [None]
